FAERS Safety Report 18159450 (Version 2)
Quarter: 2020Q4

REPORT INFORMATION
  Report Type: Report from Study
  Country: CA (occurrence: CA)
  Receive Date: 20200817
  Receipt Date: 20201005
  Transmission Date: 20210113
  Serious: Yes (Other)
  Sender: FDA-Public Use
  Company Number: CA-HLS-202001018

PATIENT
  Sex: Male

DRUGS (1)
  1. CLOZARIL [Suspect]
     Active Substance: CLOZAPINE
     Indication: NEUROPSYCHIATRIC SYMPTOMS
     Dosage: 12.5 MG INITIALLY, THEN REDUCED FURTHER TO 6.25MG AT BEDTIME.
     Route: 048
     Dates: start: 20200724, end: 20200801

REACTIONS (1)
  - Parkinson^s disease [Recovered/Resolved]
